FAERS Safety Report 21846295 (Version 1)
Quarter: 2023Q1

REPORT INFORMATION
  Report Type: Spontaneous
  Country: US (occurrence: US)
  Receive Date: 20230111
  Receipt Date: 20230111
  Transmission Date: 20230418
  Serious: No
  Sender: FDA-Public Use
  Company Number: US-AUROBINDO-AUR-APL-2022-022457

PATIENT
  Sex: Female
  Weight: 74 kg

DRUGS (1)
  1. ECONTRA ONE-STEP [Suspect]
     Active Substance: LEVONORGESTREL
     Indication: Contraception
     Dosage: UNK (PATIENT ONLY TOOK THE PRODUCT ONCE ON TWO DIFFERENT OCCASIONS)
     Route: 065
     Dates: start: 202201

REACTIONS (2)
  - Weight increased [Recovered/Resolved]
  - Hyperphagia [Recovered/Resolved]

NARRATIVE: CASE EVENT DATE: 20220101
